FAERS Safety Report 9933295 (Version 2)
Quarter: 2014Q1

REPORT INFORMATION
  Report Type: Report from Study
  Country: US (occurrence: US)
  Receive Date: 20140228
  Receipt Date: 20140228
  Transmission Date: 20141002
  Serious: No
  Sender: FDA-Public Use
  Company Number: US-MYLANLABS-2013S1003713

PATIENT
  Age: 20 Year
  Sex: Female
  Weight: 56.7 kg

DRUGS (3)
  1. AMNESTEEM CAPSULES [Suspect]
     Indication: ACNE
     Route: 048
     Dates: start: 20121211, end: 20130110
  2. ZOLOFT [Concomitant]
  3. ORAL CONTRACEPTIVE NOS [Concomitant]

REACTIONS (2)
  - Anxiety [Recovered/Resolved]
  - Headache [Recovered/Resolved]
